FAERS Safety Report 10522559 (Version 5)
Quarter: 2015Q2

REPORT INFORMATION
  Report Type: Report from Study
  Country: US (occurrence: US)
  Receive Date: 20141016
  Receipt Date: 20150629
  Transmission Date: 20150821
  Serious: Yes (Other)
  Sender: FDA-Public Use
  Company Number: US-SA-2014SA139292

PATIENT
  Age: 76 Year
  Sex: Female
  Weight: 68 kg

DRUGS (16)
  1. VITAMIN D3 [Concomitant]
     Active Substance: CHOLECALCIFEROL
     Dosage: 1000 IV
  2. ISOSORBIDE MONONITRATE. [Concomitant]
     Active Substance: ISOSORBIDE MONONITRATE
     Indication: CARDIAC DISORDER
     Dosage: 30 MG
     Dates: start: 2006
  3. LOSARTAN POTASSIUM/HYDROCHLOROTHIAZIDE [Concomitant]
     Indication: CARDIAC DISORDER
     Dates: start: 2006
  4. FISH OIL [Concomitant]
     Active Substance: FISH OIL
     Dosage: 1000 MG
  5. AUBAGIO [Suspect]
     Active Substance: TERIFLUNOMIDE
     Indication: MULTIPLE SCLEROSIS
     Route: 048
     Dates: start: 20140909
  6. KLOR-CON [Concomitant]
     Active Substance: POTASSIUM CHLORIDE
  7. COMBIGAN [Concomitant]
     Active Substance: BRIMONIDINE TARTRATE\TIMOLOL MALEATE
     Indication: GLAUCOMA
     Dosage: 1 DROP 2XDAY
  8. OXYGEN. [Concomitant]
     Active Substance: OXYGEN
     Dosage: 2 LITRES AT NIGHT
  9. AMPYRA [Concomitant]
     Active Substance: DALFAMPRIDINE
     Indication: MULTIPLE SCLEROSIS
     Dosage: 10 MG
     Dates: start: 20140805
  10. CRESTOR [Concomitant]
     Active Substance: ROSUVASTATIN CALCIUM
     Indication: BLOOD CHOLESTEROL
     Dosage: 40 MG
     Dates: start: 2010
  11. ECOTRIN [Concomitant]
     Active Substance: ASPIRIN
     Indication: CARDIAC DISORDER
     Dosage: 325 MG
     Dates: start: 2006
  12. FOLIC ACID. [Concomitant]
     Active Substance: FOLIC ACID
     Dosage: 1000 MG?STSRT DATE: IN 1990^S
  13. NITRO [Concomitant]
     Active Substance: NITROGLYCERIN
     Indication: CARDIAC DISORDER
     Dosage: 0.4 MG
  14. ATENOLOL. [Concomitant]
     Active Substance: ATENOLOL
     Indication: CARDIAC DISORDER
     Dosage: 25 MG
     Dates: start: 2006
  15. FAMOTIDINE. [Concomitant]
     Active Substance: FAMOTIDINE
     Indication: CARDIAC DISORDER
     Dosage: 20 MG
  16. COENZYME Q10 [Concomitant]
     Active Substance: UBIDECARENONE
     Indication: CARDIAC DISORDER
     Dosage: 100 MG
     Dates: start: 2006

REACTIONS (5)
  - Cellulitis [Unknown]
  - Ankle fracture [Unknown]
  - Diarrhoea [Unknown]
  - Therapeutic response decreased [Unknown]
  - Drug ineffective [Unknown]

NARRATIVE: CASE EVENT DATE: 201410
